FAERS Safety Report 9938180 (Version 2)
Quarter: 2014Q1

REPORT INFORMATION
  Report Type: Report from Study
  Country: US (occurrence: US)
  Receive Date: 20140303
  Receipt Date: 20140303
  Transmission Date: 20141002
  Serious: No
  Sender: FDA-Public Use
  Company Number: US-ABBVIE-12P-163-0952370-00

PATIENT
  Age: 44 Year
  Sex: Female

DRUGS (5)
  1. HUMIRA [Suspect]
     Indication: PSORIATIC ARTHROPATHY
     Route: 058
     Dates: start: 20120608, end: 20120608
  2. HUMIRA [Suspect]
     Dosage: ON DAY 8
  3. HUMIRA [Suspect]
  4. TYLENOL [Concomitant]
     Indication: PAIN
  5. BENADRYL [Concomitant]

REACTIONS (5)
  - Throat irritation [Recovered/Resolved]
  - Inappropriate schedule of drug administration [Unknown]
  - Vomiting [Unknown]
  - Nausea [Recovered/Resolved]
  - Injection site pain [Unknown]
